FAERS Safety Report 5199107-3 (Version None)
Quarter: 2007Q1

REPORT INFORMATION
  Report Type: 
  Country: None (occurrence: None)
  Receive Date: 20070104
  Receipt Date: 20040324
  Transmission Date: 20070707
  Serious: Yes (Other)
  Sender: FDA-Public Use
  Company Number: US-SHR-US-2004-040268

PATIENT
  Age: 27 Year
  Sex: Female

DRUGS (1)
  1. BETASERON [Suspect]
     Indication: RELAPSING-REMITTING MULTIPLE SCLEROSIS
     Dosage: 8 MIU, EVERY 2D
     Route: 058
     Dates: start: 20030402, end: 20040301

REACTIONS (5)
  - BLOOD IRON INCREASED [None]
  - CHROMATURIA [None]
  - DECREASED APPETITE [None]
  - HEPATIC ENZYME INCREASED [None]
  - OCULAR ICTERUS [None]
